FAERS Safety Report 6243547-8 (Version None)
Quarter: 2009Q2

REPORT INFORMATION
  Report Type: 
  Country: None (occurrence: None)
  Receive Date: 20090618
  Receipt Date: 20081120
  Transmission Date: 20091009
  Serious: Yes (Hospitalization)
  Sender: FDA-Public Use
  Company Number: CIP08002462

PATIENT
  Age: 78 Year
  Sex: Female

DRUGS (1)
  1. ACTONEL [Suspect]
     Dosage: 35 MG TOOK ONE, ORAL
     Route: 048

REACTIONS (2)
  - ARTHRALGIA [None]
  - MUSCLE SPASMS [None]
